FAERS Safety Report 10149600 (Version 1)
Quarter: 2014Q2

REPORT INFORMATION
  Report Type: Spontaneous
  Country: US (occurrence: US)
  Receive Date: 20140502
  Receipt Date: 20140502
  Transmission Date: 20141212
  Serious: No
  Sender: FDA-Public Use
  Company Number: US-PFIZER INC-2014118128

PATIENT
  Age: 76 Year
  Sex: Female
  Weight: 53.6 kg

DRUGS (3)
  1. SUTENT [Suspect]
     Indication: SOFT TISSUE SARCOMA
     Dosage: 50 MG, CYCLIC (DAILY FOR 4 WEEKS OF 6 WEEKS REGIMEN)
     Route: 048
     Dates: start: 20131017, end: 20140425
  2. LISINOPRIL [Concomitant]
  3. LOVASTATIN [Concomitant]

REACTIONS (3)
  - Oral mucosal blistering [Not Recovered/Not Resolved]
  - Oropharyngeal pain [Recovered/Resolved]
  - Off label use [Unknown]
